FAERS Safety Report 4737642-X (Version None)
Quarter: 2005Q3

REPORT INFORMATION
  Report Type: 
  Country: None (occurrence: None)
  Receive Date: 20050809
  Receipt Date: 20050606
  Transmission Date: 20060218
  Serious: No
  Sender: FDA-Public Use
  Company Number: US-GLAXOSMITHKLINE-A0561286A

PATIENT
  Age: 70 Year
  Sex: Female

DRUGS (2)
  1. COMMIT [Suspect]
     Route: 002
     Dates: end: 20050501
  2. PHAZYME ULTRA STRENGTH SOFTGELS [Suspect]
     Route: 048

REACTIONS (3)
  - ABNORMAL FAECES [None]
  - DRUG INEFFECTIVE [None]
  - FLATULENCE [None]
